FAERS Safety Report 7355053-8 (Version None)
Quarter: 2011Q1

REPORT INFORMATION
  Report Type: 
  Country: None (occurrence: None)
  Receive Date: 20110316
  Receipt Date: 20110307
  Transmission Date: 20110831
  Serious: Yes (Other)
  Sender: FDA-Public Use
  Company Number: US-JNJFOC-20110305095

PATIENT
  Age: 36 Year
  Sex: Female
  Weight: 74.84 kg

DRUGS (3)
  1. SUDAFED S.A. [Suspect]
     Indication: MULTIPLE ALLERGIES
     Dosage: ONE TABLET
     Route: 048
  2. SUDAFED S.A. [Suspect]
     Indication: SINUS DISORDER
     Dosage: ONE TABLET
     Route: 048
  3. AMOXICILLIN [Suspect]
     Indication: PRODUCT USED FOR UNKNOWN INDICATION
     Route: 065

REACTIONS (2)
  - EXPIRED DRUG ADMINISTERED [None]
  - LOSS OF CONSCIOUSNESS [None]
